FAERS Safety Report 24606115 (Version 1)
Quarter: 2024Q4

REPORT INFORMATION
  Report Type: Spontaneous
  Country: US (occurrence: US)
  Receive Date: 20241112
  Receipt Date: 20241112
  Transmission Date: 20250115
  Serious: Yes (Other)
  Sender: MERCK
  Company Number: US-009507513-2411USA002005

PATIENT
  Age: 79 Year
  Sex: Male

DRUGS (16)
  1. MOLNUPIRAVIR [Suspect]
     Active Substance: MOLNUPIRAVIR
     Indication: COVID-19 treatment
     Dosage: 200 MILLIGRAM, 5 TIMES PER DAY
     Route: 048
     Dates: start: 20241104
  2. FLECAINIDE [Concomitant]
     Active Substance: FLECAINIDE
  3. HYDROCODONE [Concomitant]
     Active Substance: HYDROCODONE
  4. PENTOPRIL [Concomitant]
     Active Substance: PENTOPRIL
  5. TAMSULOSIN [Concomitant]
     Active Substance: TAMSULOSIN
  6. VITAMIN B12 [Concomitant]
     Active Substance: CYANOCOBALAMIN
  7. DIPHENE [Concomitant]
  8. DRAMAMINE [Concomitant]
     Active Substance: DIMENHYDRINATE
  9. METOPROLOL [Concomitant]
     Active Substance: METOPROLOL
  10. CETIRIZINE [Concomitant]
     Active Substance: CETIRIZINE HYDROCHLORIDE
  11. STOOL SOFTENER (DOCUSATE) [Concomitant]
     Active Substance: DOCUSATE
  12. BENZONATATE [Concomitant]
     Active Substance: BENZONATATE
  13. POTASSIUM [Concomitant]
     Active Substance: POTASSIUM
  14. XARELTO [Concomitant]
     Active Substance: RIVAROXABAN
  15. ONDANSETRON [Concomitant]
     Active Substance: ONDANSETRON
  16. GABAPENTIN [Concomitant]
     Active Substance: GABAPENTIN

REACTIONS (4)
  - Hallucination, visual [Recovered/Resolved]
  - Disorientation [Recovered/Resolved]
  - Inappropriate schedule of product administration [Unknown]
  - Incorrect dose administered [Unknown]

NARRATIVE: CASE EVENT DATE: 20241104
